FAERS Safety Report 9912236 (Version 2)
Quarter: 2014Q2

REPORT INFORMATION
  Report Type: Spontaneous
  Country: US (occurrence: US)
  Receive Date: 20140220
  Receipt Date: 20140513
  Transmission Date: 20141212
  Serious: No
  Sender: FDA-Public Use
  Company Number: US-SA-2013SA116802

PATIENT
  Age: 48 Year
  Sex: Female
  Weight: 54.6 kg

DRUGS (1)
  1. ZALTRAP [Suspect]
     Dosage: DOSE - 227 MG EVERY 2 WEEKS
     Route: 065
     Dates: start: 20131024, end: 20131108

REACTIONS (3)
  - Back pain [Recovered/Resolved]
  - Muscle spasms [Recovered/Resolved]
  - Abdominal pain [Recovered/Resolved]
